FAERS Safety Report 6333884-0 (Version None)
Quarter: 2009Q3

REPORT INFORMATION
  Report Type: 
  Country: None (occurrence: None)
  Receive Date: 20090829
  Receipt Date: 20090617
  Transmission Date: 20100115
  Serious: No
  Sender: FDA-Public Use
  Company Number: US-ABBOTT-09P-163-0580541-00

PATIENT
  Sex: Male
  Weight: 106.69 kg

DRUGS (12)
  1. SIMCOR [Suspect]
     Indication: BLOOD CHOLESTEROL ABNORMAL
     Dosage: 1000/20 MILLIGRAMS,AT BEDTIME WITH SNACK
     Route: 048
     Dates: start: 20090601
  2. FLOMAX [Concomitant]
     Indication: DRUG USE FOR UNKNOWN INDICATION
  3. ZOLOFT [Concomitant]
     Indication: DRUG USE FOR UNKNOWN INDICATION
  4. AMOXICILLIN [Concomitant]
     Indication: DRUG USE FOR UNKNOWN INDICATION
  5. UNKNOWN MED FOR URETER/URETHRAL SCAR TISSUE [Concomitant]
     Indication: SCAR
  6. UNKNOWN MED FOR URETER/URETHRAL SCAR TISSUE [Concomitant]
     Indication: URETHRAL DISORDER
  7. UNKNOWN MED FOR URETER/URETHRAL SCAR TISSUE [Concomitant]
     Indication: URETERAL DISORDER
  8. METOPROLOL OMEPRAZOLE [Concomitant]
     Indication: DRUG USE FOR UNKNOWN INDICATION
  9. ALLOPURINOL [Concomitant]
     Indication: DRUG USE FOR UNKNOWN INDICATION
  10. ASPIRIN [Concomitant]
     Indication: DRUG USE FOR UNKNOWN INDICATION
  11. VITAMIN B-12 [Concomitant]
     Indication: DRUG USE FOR UNKNOWN INDICATION
  12. LORAZEPAM [Concomitant]
     Indication: INSOMNIA

REACTIONS (3)
  - MYALGIA [None]
  - NAUSEA [None]
  - VOMITING [None]
